FAERS Safety Report 5248433-8 (Version None)
Quarter: 2007Q1

REPORT INFORMATION
  Report Type: 
  Country: None (occurrence: None)
  Receive Date: 20070222
  Receipt Date: 20061129
  Transmission Date: 20070707
  Serious: Yes (Other)
  Sender: FDA-Public Use
  Company Number: JPI-P-000623

PATIENT
  Age: 54 Year
  Sex: Male
  Weight: 86.1834 kg

DRUGS (14)
  1. XYREM [Suspect]
     Indication: CATAPLEXY
     Dosage: SEE IMAGE
     Route: 048
     Dates: start: 20040101
  2. XYREM [Suspect]
     Indication: NARCOLEPSY
     Dosage: SEE IMAGE
     Route: 048
     Dates: start: 20040101
  3. XYREM [Suspect]
     Indication: CATAPLEXY
     Dosage: SEE IMAGE
     Route: 048
     Dates: start: 20040101
  4. XYREM [Suspect]
     Indication: NARCOLEPSY
     Dosage: SEE IMAGE
     Route: 048
     Dates: start: 20040101
  5. EFFEXOR XR [Concomitant]
  6. SYNTHROID [Concomitant]
  7. ANDROGEL [Concomitant]
  8. TYLENOL W/ CODEINE NO. 3 [Concomitant]
  9. REQUIP [Concomitant]
  10. PROVIGIL [Concomitant]
  11. NEXIUM [Concomitant]
  12. SINGULAIR [Concomitant]
  13. ASTELIN (DIPROPHYLLINE) [Concomitant]
  14. NASONEX [Concomitant]

REACTIONS (2)
  - BLOOD PRESSURE INCREASED [None]
  - LACUNAR INFARCTION [None]
